FAERS Safety Report 14569601 (Version 1)
Quarter: 2018Q1

REPORT INFORMATION
  Report Type: Spontaneous
  Country: US (occurrence: US)
  Receive Date: 20180224
  Receipt Date: 20180224
  Transmission Date: 20180509
  Serious: No
  Sender: FDA-Public Use
  Company Number: US-TEVA-2018-US-862034

PATIENT
  Sex: Male

DRUGS (1)
  1. LORATADINE AND PSEUDOEPHEDRINE SULFATE [Suspect]
     Active Substance: LORATADINE\PSEUDOEPHEDRINE SULFATE
     Indication: RESPIRATORY DISORDER
     Dosage: 10MG/ 240MG
     Route: 065
     Dates: start: 2015, end: 20180214

REACTIONS (6)
  - Erectile dysfunction [Unknown]
  - Constipation [Unknown]
  - Anal fissure [Unknown]
  - Gastrointestinal disorder [Unknown]
  - Premature ejaculation [Unknown]
  - Dyspnoea [Unknown]

NARRATIVE: CASE EVENT DATE: 20180213
